FAERS Safety Report 17142586 (Version 1)
Quarter: 2019Q4

REPORT INFORMATION
  Report Type: Spontaneous
  Country: US (occurrence: US)
  Receive Date: 20191211
  Receipt Date: 20191211
  Transmission Date: 20200122
  Serious: Yes (Other)
  Sender: FDA-Public Use
  Company Number: NVSC2019US064476

PATIENT
  Sex: Male

DRUGS (2)
  1. CARBOPLATIN. [Suspect]
     Active Substance: CARBOPLATIN
     Indication: CENTRAL NERVOUS SYSTEM NEOPLASM
     Route: 065
  2. TRAMETINIB [Suspect]
     Active Substance: TRAMETINIB
     Indication: CENTRAL NERVOUS SYSTEM NEOPLASM
     Route: 065

REACTIONS (3)
  - Product use in unapproved indication [Unknown]
  - Central nervous system neoplasm [Unknown]
  - Malignant neoplasm progression [Unknown]
